FAERS Safety Report 8513858-1 (Version None)
Quarter: 2012Q3

REPORT INFORMATION
  Report Type: 
  Country: None (occurrence: None)
  Receive Date: 20120705
  Receipt Date: 20120623
  Transmission Date: 20120928
  Serious: Yes (Hospitalization, Other)
  Sender: FDA-Public Use
  Company Number: 2012SP035372

PATIENT
  Sex: Male

DRUGS (5)
  1. BASILIXIMAB [Suspect]
     Indication: IMMUNOSUPPRESSION
     Dosage: 1 DF;ONCE;IV
     Route: 042
  2. METHYLPREDNISOLONE SODIUM SUCCINATE [Suspect]
     Indication: IMMUNOSUPPRESSION
     Dosage: 125 MG;ONCE;IV
     Route: 042
  3. TACROLIMUS [Suspect]
     Indication: IMMUNOSUPPRESSION
     Dosage: BID; PO
     Route: 048
  4. MYCOPHENOLATE MOFETIL [Suspect]
     Indication: IMMUNOSUPPRESSION
     Dosage: 1000 MG;BID;PO
     Route: 048
  5. PREDNISONE [Suspect]
     Indication: IMMUNOSUPPRESSION
     Dosage: ; PO
     Route: 048

REACTIONS (2)
  - ENCEPHALOPATHY [None]
  - BASAL CELL CARCINOMA [None]
